FAERS Safety Report 9346757 (Version 1)
Quarter: 2013Q2

REPORT INFORMATION
  Report Type: Spontaneous
  Country: US (occurrence: US)
  Receive Date: 20130613
  Receipt Date: 20130613
  Transmission Date: 20140414
  Serious: No
  Sender: FDA-Public Use
  Company Number: US-FOUGERA-2013FO000063

PATIENT
  Age: 65 Year
  Sex: Female

DRUGS (2)
  1. KETOCONAZOLE [Suspect]
     Indication: FUNGAL INFECTION
     Route: 061
     Dates: end: 201303
  2. KETOCONAZOLE [Suspect]
     Route: 061
     Dates: start: 20130225

REACTIONS (2)
  - Rash [Recovering/Resolving]
  - Inappropriate schedule of drug administration [Recovered/Resolved]
